FAERS Safety Report 23594713 (Version 1)
Quarter: 2024Q1

REPORT INFORMATION
  Report Type: Spontaneous
  Country: BG (occurrence: BG)
  Receive Date: 20240305
  Receipt Date: 20240305
  Transmission Date: 20240409
  Serious: Yes (Other)
  Sender: FDA-Public Use
  Company Number: BG-TEVA-VS-3142147

PATIENT
  Age: 78 Year
  Sex: Female

DRUGS (3)
  1. PANTOPRAZOLE [Suspect]
     Active Substance: PANTOPRAZOLE
     Indication: Arrhythmia
     Route: 065
  2. FLECAINIDE [Concomitant]
     Active Substance: FLECAINIDE
     Indication: Arrhythmia
  3. RIVAROXABAN [Concomitant]
     Active Substance: RIVAROXABAN
     Indication: Arrhythmia

REACTIONS (1)
  - Subacute cutaneous lupus erythematosus [Recovered/Resolved]
